FAERS Safety Report 11720420 (Version 1)
Quarter: 2015Q4

REPORT INFORMATION
  Report Type: Spontaneous
  Country: FR (occurrence: FR)
  Receive Date: 20151110
  Receipt Date: 20151110
  Transmission Date: 20160304
  Serious: Yes (Hospitalization)
  Sender: FDA-Public Use
  Company Number: FR-SA-2015SA175892

PATIENT
  Age: 62 Year
  Sex: Female

DRUGS (17)
  1. LASILIX [Suspect]
     Active Substance: FUROSEMIDE
     Route: 048
     Dates: end: 20150710
  2. VANCOMYCIN MYLAN [Suspect]
     Active Substance: VANCOMYCIN
     Indication: DEVICE RELATED INFECTION
     Dosage: 1.4G, 1 IN 1 DAY
     Route: 042
     Dates: start: 20150524, end: 20150711
  3. MONO-TILDIEM [Concomitant]
     Active Substance: DILTIAZEM HYDROCHLORIDE
     Dosage: MONOTILDIEM? LP?STRENGTH: 200MG?DOSAGE: 1-0-0
  4. OXYNORM [Concomitant]
     Active Substance: OXYCODONE HYDROCHLORIDE
     Dosage: STRENGTH: 5MG?DOSAGE: 0-1-0
  5. ABILIFY [Concomitant]
     Active Substance: ARIPIPRAZOLE
     Dosage: STRENGTH: 15MG
  6. TENORMIN [Concomitant]
     Active Substance: ATENOLOL
     Dosage: STRENGTH: 100MG?DOSAGE: 2-0-0
  7. IMOVANE [Concomitant]
     Active Substance: ZOPICLONE
     Dosage: STRENGTH: 7.5MG
  8. TAHOR [Concomitant]
     Active Substance: ATORVASTATIN CALCIUM
     Dosage: STRENGTH: 40MG?DOSAGE: 1-0-0
  9. COVERSYL [Suspect]
     Active Substance: PERINDOPRIL
     Dosage: 5 MG 1 IN 1 DAY
     Route: 048
     Dates: end: 20150710
  10. OXYCONTIN [Concomitant]
     Active Substance: OXYCODONE HYDROCHLORIDE
     Dosage: OXYCONTIN LP?STRENGTH: 20MG ?DOSGE: 1-0-0
  11. CEFOTAXIME [Concomitant]
     Active Substance: CEFOTAXIME SODIUM
     Dates: start: 20150524, end: 20150603
  12. AMOXICILLIN. [Concomitant]
     Active Substance: AMOXICILLIN
     Dates: start: 20150427, end: 20150524
  13. VOLIBRIS [Concomitant]
     Active Substance: AMBRISENTAN
     Dosage: STRENGTH: 5MG?DOSAGE: 1-0-0
  14. PREVISCAN [Concomitant]
     Active Substance: FLUINDIONE
     Dosage: (ACCORDING TO INR)
  15. EFFEXOR [Concomitant]
     Active Substance: VENLAFAXINE HYDROCHLORIDE
     Dosage: STRENGTH: 75MG?DOSAGE: 3-0-0
  16. CIFLOX [Concomitant]
     Active Substance: CIPROFLOXACIN
  17. CLINDAMYCIN [Concomitant]
     Active Substance: CLINDAMYCIN\CLINDAMYCIN PHOSPHATE
     Dates: start: 20150423, end: 20150524

REACTIONS (1)
  - Acute kidney injury [Recovered/Resolved]

NARRATIVE: CASE EVENT DATE: 20150708
